FAERS Safety Report 7970098-2 (Version None)
Quarter: 2011Q4

REPORT INFORMATION
  Report Type: 
  Country: None (occurrence: None)
  Receive Date: 20111212
  Receipt Date: 20111128
  Transmission Date: 20120403
  Serious: Yes (Congenital Anomaly)
  Sender: FDA-Public Use
  Company Number: DE-MYLANLABS-2011S1023513

PATIENT

DRUGS (2)
  1. CITALOPRAM [Suspect]
     Dosage: 20 [MG/D ]
     Route: 064
     Dates: start: 20100727, end: 20101203
  2. FOLIC ACID [Concomitant]
     Dosage: 0-18.3 GW
     Route: 064
     Dates: start: 20100727, end: 20101203

REACTIONS (4)
  - MATERNAL EXPOSURE DURING PREGNANCY [None]
  - OLIGOHYDRAMNIOS [None]
  - RENAL DYSPLASIA [None]
  - LIMB MALFORMATION [None]
